FAERS Safety Report 9820957 (Version 6)
Quarter: 2014Q1

REPORT INFORMATION
  Report Type: Spontaneous
  Country: US (occurrence: US)
  Receive Date: 20140116
  Receipt Date: 20140328
  Transmission Date: 20141002
  Serious: No
  Sender: FDA-Public Use
  Company Number: US-009507513-1401USA003189

PATIENT
  Age: 18 Year
  Sex: Female
  Weight: 92.97 kg

DRUGS (5)
  1. IMPLANON [Suspect]
     Indication: CONTRACEPTION
     Dosage: STANDARD
     Route: 059
     Dates: start: 20110503, end: 20140205
  2. IMPLANON [Suspect]
     Dosage: UNK
     Route: 059
     Dates: start: 20110503, end: 20110503
  3. DOXYCYCLINE [Concomitant]
     Dosage: UNK
  4. LEXAPRO [Concomitant]
     Dosage: UNK
  5. FEXOFENADINE HYDROCHLORIDE [Concomitant]
     Dosage: UNK

REACTIONS (5)
  - Device dislocation [Recovered/Resolved]
  - Device difficult to use [Recovered/Resolved]
  - Device deployment issue [Recovered/Resolved]
  - Amenorrhoea [Not Recovered/Not Resolved]
  - Medical device complication [Recovered/Resolved]
